FAERS Safety Report 16794089 (Version 1)
Quarter: 2019Q3

REPORT INFORMATION
  Report Type: Spontaneous
  Country: US (occurrence: US)
  Receive Date: 20190719
  Receipt Date: 20190719
  Transmission Date: 20191005
  Serious: Yes (Hospitalization)
  Sender: FDA-Public Use
  Company Number: None

PATIENT
  Age: 34 Year
  Sex: Female
  Weight: 103.87 kg

DRUGS (1)
  1. CLOZAPINE (MYLAN) [Suspect]
     Active Substance: CLOZAPINE
     Indication: SCHIZOAFFECTIVE DISORDER
     Route: 048
     Dates: start: 20190208, end: 20190304

REACTIONS (2)
  - Pericarditis [None]
  - Pneumonia [None]

NARRATIVE: CASE EVENT DATE: 20190301
